FAERS Safety Report 5993086-4 (Version None)
Quarter: 2008Q4

REPORT INFORMATION
  Report Type: 
  Country: None (occurrence: None)
  Receive Date: 20081212
  Receipt Date: 20080602
  Transmission Date: 20090506
  Serious: No
  Sender: FDA-Public Use
  Company Number: US-AMGEN-KDL275295

PATIENT
  Sex: Male

DRUGS (13)
  1. ENBREL [Suspect]
     Indication: RHEUMATOID ARTHRITIS
     Route: 058
     Dates: start: 20080101
  2. PREDNISONE [Suspect]
  3. METHOTREXATE [Suspect]
  4. ALEVE [Suspect]
  5. COUMADIN [Concomitant]
     Route: 048
     Dates: start: 20070101
  6. NEXIUM [Concomitant]
  7. METOPROLOL TARTRATE [Concomitant]
  8. DETROL [Concomitant]
  9. FOSAMAX [Concomitant]
  10. CELEBREX [Concomitant]
  11. FOLIC ACID [Concomitant]
  12. LORAZEPAM [Concomitant]
  13. UNKNOWN [Concomitant]

REACTIONS (7)
  - ANXIETY [None]
  - FATIGUE [None]
  - FEAR [None]
  - INSOMNIA [None]
  - NERVOUSNESS [None]
  - SOMNOLENCE [None]
  - TREMOR [None]
